FAERS Safety Report 9896567 (Version 1)
Quarter: 2014Q1

REPORT INFORMATION
  Report Type: Spontaneous
  Country: US (occurrence: US)
  Receive Date: 20140213
  Receipt Date: 20140213
  Transmission Date: 20141002
  Serious: No
  Sender: FDA-Public Use
  Company Number: US-BRISTOL-MYERS SQUIBB COMPANY-19118322

PATIENT
  Age: 52 Year
  Sex: Female
  Weight: 92.06 kg

DRUGS (11)
  1. ABATACEPT SUBQ INJECTION 125MG/ML [Suspect]
     Indication: RHEUMATOID ARTHRITIS
     Dosage: 1DF:125MG/ML
     Route: 058
     Dates: start: 20130409
  2. VITAMIN E [Concomitant]
  3. VITAMIN C [Concomitant]
  4. VICODIN [Concomitant]
  5. SYNTHROID [Concomitant]
  6. PREDNISONE [Concomitant]
  7. NORVASC [Concomitant]
  8. CALTRATE + D [Concomitant]
  9. FOLIC ACID [Concomitant]
  10. ASPIRIN [Concomitant]
  11. METHOTREXATE [Concomitant]

REACTIONS (1)
  - Nasopharyngitis [Unknown]
